FAERS Safety Report 25767666 (Version 1)
Quarter: 2025Q3

REPORT INFORMATION
  Report Type: Spontaneous
  Country: US (occurrence: US)
  Receive Date: 20250905
  Receipt Date: 20250905
  Transmission Date: 20251020
  Serious: No
  Sender: ASTELLAS
  Company Number: US-ASTELLAS-2025-AER-044154

PATIENT
  Age: 80 Year
  Sex: Female

DRUGS (4)
  1. VEOZAH [Suspect]
     Active Substance: FEZOLINETANT
     Indication: Hot flush
     Route: 065
     Dates: start: 2024
  2. VEOZAH [Suspect]
     Active Substance: FEZOLINETANT
     Route: 065
  3. VEOZAH [Suspect]
     Active Substance: FEZOLINETANT
     Route: 065
  4. VEOZAH [Suspect]
     Active Substance: FEZOLINETANT
     Dosage: 1 TABLET DAILY
     Route: 065

REACTIONS (1)
  - Inappropriate schedule of product administration [Unknown]
